FAERS Safety Report 25084541 (Version 1)
Quarter: 2025Q1

REPORT INFORMATION
  Report Type: Spontaneous
  Country: US (occurrence: US)
  Receive Date: 20250317
  Receipt Date: 20250317
  Transmission Date: 20250409
  Serious: Yes (Hospitalization, Other)
  Sender: PFIZER
  Company Number: US-AstraZeneca-CH-00711678A

PATIENT
  Sex: Male
  Weight: 72.574 kg

DRUGS (3)
  1. VYNDAMAX [Interacting]
     Active Substance: TAFAMIDIS
     Indication: Amyloidosis
     Dosage: 61 MILLIGRAM, 1/DAY
     Route: 048
  2. CRESTOR [Interacting]
     Active Substance: ROSUVASTATIN CALCIUM
     Dosage: 20 MILLIGRAM QHS
     Route: 048
  3. FARXIGA [Interacting]
     Active Substance: DAPAGLIFLOZIN PROPANEDIOL
     Route: 048

REACTIONS (7)
  - Drug interaction [Unknown]
  - Cerebral palsy [Unknown]
  - Cardiac failure congestive [Unknown]
  - Prosthetic cardiac valve failure [Unknown]
  - Chest pain [Unknown]
  - Left ventricular hypertrophy [Unknown]
  - Cardiovascular disorder [Unknown]
